FAERS Safety Report 14706508 (Version 11)
Quarter: 2018Q4

REPORT INFORMATION
  Report Type: Spontaneous
  Country: US (occurrence: US)
  Receive Date: 20180402
  Receipt Date: 20181221
  Transmission Date: 20190204
  Serious: Yes (Hospitalization, Other)
  Sender: FDA-Public Use
  Company Number: US-ACTELION-A-US2018-170005

PATIENT
  Age: 28 Year
  Sex: Male
  Weight: 124.72 kg

DRUGS (7)
  1. LETAIRIS [Suspect]
     Active Substance: AMBRISENTAN
     Indication: PRODUCT USED FOR UNKNOWN INDICATION
     Dosage: 10 MG, QD
     Route: 065
     Dates: start: 20101115
  2. UPTRAVI [Suspect]
     Active Substance: SELEXIPAG
     Indication: PULMONARY ARTERIAL HYPERTENSION
     Dosage: 600 MCG, BID
     Route: 048
     Dates: end: 20180715
  3. TYVASO [Concomitant]
     Active Substance: TREPROSTINIL
     Dosage: 6 BREATHS
  4. TYVASO [Concomitant]
     Active Substance: TREPROSTINIL
     Dosage: 4 BREATHS
  5. UPTRAVI [Suspect]
     Active Substance: SELEXIPAG
     Dosage: 400 MCG, BID
     Route: 048
  6. ADCIRCA [Concomitant]
     Active Substance: TADALAFIL
  7. UPTRAVI [Suspect]
     Active Substance: SELEXIPAG
     Dosage: 400 MCG, QD
     Route: 048

REACTIONS (30)
  - Oxygen saturation decreased [Unknown]
  - Abdominal pain upper [Unknown]
  - Inflammation [Not Recovered/Not Resolved]
  - Epicondylitis [Not Recovered/Not Resolved]
  - Seizure [Unknown]
  - Gastrooesophageal reflux disease [Unknown]
  - Intentional product use issue [Unknown]
  - Abdominal pain [Not Recovered/Not Resolved]
  - Asthenia [Unknown]
  - Diarrhoea [Not Recovered/Not Resolved]
  - Pneumonitis [Unknown]
  - Long QT syndrome [Unknown]
  - Post procedural haemorrhage [Unknown]
  - Hypoxia [Unknown]
  - Gait disturbance [Not Recovered/Not Resolved]
  - Myocardial necrosis marker increased [Unknown]
  - Loss of consciousness [Unknown]
  - Lymphadenectomy [Unknown]
  - Malaise [Recovering/Resolving]
  - Abdominal discomfort [Not Recovered/Not Resolved]
  - Dyspnoea [Not Recovered/Not Resolved]
  - Dizziness [Recovering/Resolving]
  - Gallbladder disorder [Not Recovered/Not Resolved]
  - Nausea [Not Recovered/Not Resolved]
  - Pulmonary pain [Not Recovered/Not Resolved]
  - Chest pain [Unknown]
  - Tonsillectomy [Unknown]
  - Sinus operation [Unknown]
  - Syncope [Unknown]
  - Condition aggravated [Unknown]

NARRATIVE: CASE EVENT DATE: 20180321
